FAERS Safety Report 5441578-9 (Version None)
Quarter: 2007Q3

REPORT INFORMATION
  Report Type: 
  Country: None (occurrence: None)
  Receive Date: 20070830
  Receipt Date: 20070830
  Transmission Date: 20080115
  Serious: No
  Sender: FDA-Public Use
  Company Number: None

PATIENT
  Age: 66 Year
  Sex: Male
  Weight: 82.1011 kg

DRUGS (1)
  1. AMLODIPINE [Suspect]
     Indication: PERIPHERAL VASCULAR DISORDER
     Dosage: DAILY ORAL
     Route: 048
     Dates: start: 20070701

REACTIONS (3)
  - DISEASE RECURRENCE [None]
  - HYPOAESTHESIA [None]
  - THERAPEUTIC RESPONSE UNEXPECTED WITH DRUG SUBSTITUTION [None]
